FAERS Safety Report 5169504-0 (Version None)
Quarter: 2006Q4

REPORT INFORMATION
  Report Type: 
  Country: None (occurrence: None)
  Receive Date: 20061204
  Receipt Date: 20061121
  Transmission Date: 20070319
  Serious: Yes (Hospitalization)
  Sender: FDA-Public Use
  Company Number: 2006EN000161

PATIENT
  Age: 75 Year
  Sex: Female

DRUGS (27)
  1. ONCASPAR [Suspect]
     Indication: METASTATIC NEOPLASM
     Dosage: 1163 IU; IV; SEE IMAGE
     Route: 042
     Dates: start: 20060725, end: 20060725
  2. ONCASPAR [Suspect]
     Indication: TRANSITIONAL CELL CARCINOMA
     Dosage: 1163 IU; IV; SEE IMAGE
     Route: 042
     Dates: start: 20060725, end: 20060725
  3. ONCASPAR [Suspect]
     Indication: METASTATIC NEOPLASM
     Dosage: 1163 IU; IV; SEE IMAGE
     Route: 042
     Dates: start: 20060822, end: 20060822
  4. ONCASPAR [Suspect]
     Indication: TRANSITIONAL CELL CARCINOMA
     Dosage: 1163 IU; IV; SEE IMAGE
     Route: 042
     Dates: start: 20060822, end: 20060822
  5. ONCASPAR [Suspect]
     Indication: METASTATIC NEOPLASM
     Dosage: 1163 IU; IV; SEE IMAGE
     Route: 042
     Dates: start: 20060926, end: 20060926
  6. ONCASPAR [Suspect]
     Indication: TRANSITIONAL CELL CARCINOMA
     Dosage: 1163 IU; IV; SEE IMAGE
     Route: 042
     Dates: start: 20060926, end: 20060926
  7. GEMCITABINE [Suspect]
     Indication: METASTATIC NEOPLASM
     Dosage: 1200 MG; IV; SEE IMAGE
     Route: 042
     Dates: start: 20060801, end: 20060801
  8. GEMCITABINE [Suspect]
     Indication: TRANSITIONAL CELL CARCINOMA
     Dosage: 1200 MG; IV; SEE IMAGE
     Route: 042
     Dates: start: 20060801, end: 20060801
  9. GEMCITABINE [Suspect]
     Indication: METASTATIC NEOPLASM
     Dosage: 1200 MG; IV; SEE IMAGE
     Route: 042
     Dates: start: 20060829, end: 20060829
  10. GEMCITABINE [Suspect]
     Indication: TRANSITIONAL CELL CARCINOMA
     Dosage: 1200 MG; IV; SEE IMAGE
     Route: 042
     Dates: start: 20060829, end: 20060829
  11. GEMCITABINE [Suspect]
  12. NEURONTIN [Concomitant]
  13. VALTREX [Concomitant]
  14. ZYRTEC [Concomitant]
  15. PROTONIX [Concomitant]
  16. CARAFATE [Concomitant]
  17. IRON [Concomitant]
  18. LASIX [Concomitant]
  19. CALCIUM CARBONATE W/VITAMIN D NOS [Concomitant]
  20. VITAMIN B6 [Concomitant]
  21. MIRALAX [Concomitant]
  22. VICODIN [Concomitant]
  23. CATAPRES [Concomitant]
  24. PATANOL [Concomitant]
  25. TYLENOL EXTRA-STRENGTH [Concomitant]
  26. K-DUR 10 [Concomitant]
  27. VITAMIN B COMPLEX WITH C [Concomitant]

REACTIONS (6)
  - ANAEMIA OF CHRONIC DISEASE [None]
  - CELLULITIS [None]
  - OEDEMA PERIPHERAL [None]
  - PYREXIA [None]
  - STASIS DERMATITIS [None]
  - THROMBOCYTOPENIA [None]
